FAERS Safety Report 20907737 (Version 1)
Quarter: 2022Q2

REPORT INFORMATION
  Report Type: Spontaneous
  Country: US (occurrence: US)
  Receive Date: 20220602
  Receipt Date: 20220602
  Transmission Date: 20220721
  Serious: No
  Sender: FDA-Public Use
  Company Number: US-NOVARTISTESTPH-NVSC2022US126764

PATIENT
  Sex: Male

DRUGS (1)
  1. RECLAST [Suspect]
     Active Substance: ZOLEDRONIC ACID
     Indication: Product used for unknown indication
     Dosage: UNK
     Route: 065
     Dates: start: 20220517

REACTIONS (12)
  - Heart rate irregular [Unknown]
  - Blood urine present [Unknown]
  - Condition aggravated [Unknown]
  - Dysuria [Unknown]
  - Confusional state [Unknown]
  - Dyspnoea [Unknown]
  - Muscle spasms [Unknown]
  - Cardiac disorder [Unknown]
  - Chills [Unknown]
  - Headache [Unknown]
  - Pyrexia [Unknown]
  - Hypersensitivity [Unknown]
